FAERS Safety Report 21854396 (Version 1)
Quarter: 2023Q1

REPORT INFORMATION
  Report Type: Spontaneous
  Country: ES (occurrence: ES)
  Receive Date: 20230112
  Receipt Date: 20230112
  Transmission Date: 20230418
  Serious: Yes (Hospitalization, Other)
  Sender: FDA-Public Use
  Company Number: None

PATIENT
  Age: 84 Year
  Sex: Male
  Weight: 71 kg

DRUGS (14)
  1. OLANZAPINE [Interacting]
     Active Substance: OLANZAPINE
     Indication: Agitation
     Dosage: 30 MG, UNKNOWN
     Route: 048
     Dates: start: 20220622, end: 20220704
  2. AMILORIDE HYDROCHLORIDE\HYDROCHLOROTHIAZIDE [Interacting]
     Active Substance: AMILORIDE HYDROCHLORIDE\HYDROCHLOROTHIAZIDE
     Indication: Hypertension
     Dosage: 1 DOSAGE FORM, UNKNOWN
     Route: 048
     Dates: start: 20220620, end: 20220701
  3. FLUCONAZOLE [Interacting]
     Active Substance: FLUCONAZOLE
     Indication: Pneumonia
     Dosage: 200 MG, UNKNOWN
     Route: 042
     Dates: start: 20220702, end: 20220704
  4. FUROSEMIDE [Interacting]
     Active Substance: FUROSEMIDE
     Indication: Hypertension
     Dosage: 40 MG, UNKNOWN
     Route: 048
     Dates: start: 20220620
  5. VANCOMYCIN [Concomitant]
     Active Substance: VANCOMYCIN
     Indication: Pneumonia
     Dosage: 1500 MG, DAILY
     Dates: start: 20220702, end: 20220706
  6. ASPARTIC ACID\POTASSIUM ASCORBATE [Concomitant]
     Active Substance: ASPARTIC ACID\POTASSIUM ASCORBATE
     Indication: Hypokalaemia
     Dosage: 2 DOSAGE FORM, DAILY
     Route: 048
     Dates: start: 20220625
  7. PANTOPRAZOLE [Concomitant]
     Active Substance: PANTOPRAZOLE
     Indication: Prophylaxis
     Dosage: 40 MG, UNKNOWN
     Route: 048
     Dates: start: 20220620
  8. ATORVASTATIN [Concomitant]
     Active Substance: ATORVASTATIN
     Indication: Acute myocardial infarction
     Dosage: 80 MG, UNKNOWN
     Route: 048
     Dates: start: 20220620
  9. TICAGRELOR [Concomitant]
     Active Substance: TICAGRELOR
     Indication: Acute myocardial infarction
     Dosage: 180 MG, UNKNOWN
     Route: 048
     Dates: start: 20220620
  10. HIBOR [Concomitant]
     Indication: Prophylaxis
     Dosage: 2500 INTERNATIONAL UNIT, UNKNOWN
     Route: 058
     Dates: start: 20220620
  11. PIPERACILLIN SODIUM\TAZOBACTAM SODIUM [Concomitant]
     Active Substance: PIPERACILLIN SODIUM\TAZOBACTAM SODIUM
     Indication: Pneumonia
     Dosage: 4 G, TID
     Dates: start: 20220701
  12. MELATONIN [Concomitant]
     Active Substance: MELATONIN
     Indication: Insomnia
     Dosage: 4 MG, UNKNOWN
     Route: 048
     Dates: start: 20220629, end: 20220718
  13. MAGNESIOBOI [Concomitant]
     Indication: Hypomagnesaemia
     Dosage: 4 DOSAGE FORM, UNKNOWN
     Route: 048
     Dates: start: 20220625
  14. ASPIRIN [Concomitant]
     Active Substance: ASPIRIN
     Indication: Acute myocardial infarction
     Dosage: 100 MG, UNKNOWN
     Route: 048
     Dates: start: 20220620

REACTIONS (4)
  - Hyponatraemia [Recovered/Resolved]
  - Anticholinergic syndrome [Recovered/Resolved]
  - Drug interaction [Unknown]
  - Off label use [Unknown]

NARRATIVE: CASE EVENT DATE: 20220704
